FAERS Safety Report 5319199-8 (Version None)
Quarter: 2007Q2

REPORT INFORMATION
  Report Type: 
  Country: None (occurrence: None)
  Receive Date: 20070508
  Receipt Date: 20070427
  Transmission Date: 20071010
  Serious: Yes (Life-Threatening)
  Sender: FDA-Public Use
  Company Number: IT-ASTRAZENECA-2007SE02412

PATIENT
  Age: 12500 Day
  Sex: Female

DRUGS (3)
  1. LIDOCAINE [Suspect]
     Indication: ANAESTHESIA
     Dates: start: 20070404, end: 20070404
  2. NAROPIN [Suspect]
     Indication: ANAESTHESIA
     Route: 037
     Dates: start: 20070404, end: 20070404
  3. FENTATIENIL [Suspect]
     Indication: ANAESTHESIA
     Route: 037
     Dates: start: 20070404, end: 20070404

REACTIONS (2)
  - ANAPHYLACTIC SHOCK [None]
  - DYSPNOEA [None]
